FAERS Safety Report 9430772 (Version 1)
Quarter: 2013Q3

REPORT INFORMATION
  Report Type: Spontaneous
  Country: IT (occurrence: None)
  Receive Date: 20130726
  Receipt Date: 20130726
  Transmission Date: 20140515
  Serious: Yes (Death, Hospitalization)
  Sender: FDA-Public Use
  Company Number: GER/ITL/13/0033554

PATIENT
  Age: 88 Year
  Sex: Female

DRUGS (8)
  1. RAMIPRIL (RAMIPRIL) [Suspect]
     Indication: HYPERTENSION
     Route: 048
     Dates: start: 20100101, end: 20130527
  2. SPIRONOLACTONE [Suspect]
     Route: 048
     Dates: start: 20100101, end: 20130527
  3. CARDIRENE (ACETYLSALICYLAE LYSINE) [Concomitant]
  4. TIKLID (TICLOPIDINE HYDROCHLORIDE) [Concomitant]
  5. FUROSEMIDE (FUROSEMIDE) [Concomitant]
  6. OMEPRAZOLE (OMEPRAZOLE) [Concomitant]
  7. ALLOPURINOL (ALLUPURINOL) [Concomitant]
  8. BISOPROLOL HEMIFUMERATE(BISOPROLOL FUMARATE) [Concomitant]

REACTIONS (4)
  - Renal failure acute [None]
  - Intestinal ischaemia [None]
  - Blood potassium decreased [None]
  - Cardiovascular disorder [None]
